FAERS Safety Report 9440209 (Version 1)
Quarter: 2013Q3

REPORT INFORMATION
  Report Type: Spontaneous
  Country: JP (occurrence: JP)
  Receive Date: 20130805
  Receipt Date: 20130805
  Transmission Date: 20140515
  Serious: Yes (Hospitalization)
  Sender: FDA-Public Use
  Company Number: PHHY2013JP083033

PATIENT
  Sex: Male

DRUGS (3)
  1. DIOVAN [Suspect]
     Dosage: 40 MG, BID (80MG DAILY IN TWO DOSES, 40MG PER DOSE)
     Route: 048
  2. LIVALO [Concomitant]
     Dosage: 1 MG, DAILY
     Route: 048
  3. TAKEPRON [Concomitant]
     Dosage: UNK UKN, UNK
     Route: 048

REACTIONS (3)
  - Cardiac arrest [Recovered/Resolved]
  - Myocardial infarction [Unknown]
  - Syncope [Unknown]
